FAERS Safety Report 9356106 (Version 2)
Quarter: 2013Q2

REPORT INFORMATION
  Report Type: Spontaneous
  Country: DE (occurrence: None)
  Receive Date: 20130614
  Receipt Date: 20130624
  Transmission Date: 20140414
  Serious: Yes (Other)
  Sender: FDA-Public Use
  Company Number: AUR-APL-2013-04822

PATIENT
  Age: 25 Year
  Sex: Female
  Weight: 70 kg

DRUGS (4)
  1. TOPIRAMATE (TOPIRAMATE) [Suspect]
     Indication: EPILEPSY
     Dosage: 100 MG (50 MG,2 IN 1 D)
     Route: 048
     Dates: start: 20130228, end: 20130509
  2. EUTHYROX (LEVOTHYROXINE SODIUM)(TABLET)(LEVOTHYROXINE SODIUM) [Concomitant]
  3. UTOGEST (PROGESTERONE) [Concomitant]
  4. FOL PLUS (FOLIC ACID) [Concomitant]

REACTIONS (2)
  - Abortion spontaneous [None]
  - Exposure during pregnancy [None]
